FAERS Safety Report 9678094 (Version 1)
Quarter: 2013Q4

REPORT INFORMATION
  Report Type: Spontaneous
  Country: KR (occurrence: KR)
  Receive Date: 20131108
  Receipt Date: 20131108
  Transmission Date: 20140711
  Serious: Yes (Hospitalization)
  Sender: FDA-Public Use
  Company Number: KR-CELGENEUS-286-20785-13104804

PATIENT
  Sex: 0

DRUGS (2)
  1. THALIDOMIDE [Suspect]
     Indication: CHEMOTHERAPY
     Route: 048
  2. VIDAZA [Suspect]
     Indication: CHEMOTHERAPY
     Route: 065

REACTIONS (2)
  - Skin disorder [Unknown]
  - Panniculitis [Unknown]
